FAERS Safety Report 18603148 (Version 1)
Quarter: 2020Q4

REPORT INFORMATION
  Report Type: Spontaneous
  Country: US (occurrence: US)
  Receive Date: 20201210
  Receipt Date: 20201210
  Transmission Date: 20210114
  Serious: No
  Sender: FDA-Public Use
  Company Number: US-PURDUE PHARMA-USA-2020-0157195

PATIENT
  Sex: Female
  Weight: 79.37 kg

DRUGS (2)
  1. DILAUDID [Suspect]
     Active Substance: HYDROMORPHONE HYDROCHLORIDE
     Indication: NEUROPATHY PERIPHERAL
     Dosage: 4 MG, Q8H
     Route: 048
     Dates: start: 2020
  2. DILAUDID [Suspect]
     Active Substance: HYDROMORPHONE HYDROCHLORIDE
     Indication: NEURALGIA
     Dosage: 4 MG, Q6H
     Route: 048

REACTIONS (3)
  - Malaise [Unknown]
  - Drug ineffective [Unknown]
  - Fatigue [Unknown]
